FAERS Safety Report 20905695 (Version 2)
Quarter: 2022Q2

REPORT INFORMATION
  Report Type: Spontaneous
  Country: AR (occurrence: AR)
  Receive Date: 20220602
  Receipt Date: 20220630
  Transmission Date: 20220720
  Serious: No
  Sender: FDA-Public Use
  Company Number: AR-PFIZER INC-202200707976

PATIENT
  Age: 8 Year
  Sex: Male

DRUGS (1)
  1. GENOTROPIN [Suspect]
     Active Substance: SOMATROPIN
     Indication: Short stature
     Dosage: DAILY (0.6 TO 1MG, 7 TIMES A WEEK)
     Dates: start: 20220404

REACTIONS (2)
  - Drug dose omission by device [Unknown]
  - Device issue [Unknown]
